FAERS Safety Report 9716783 (Version 1)
Quarter: 2013Q4

REPORT INFORMATION
  Report Type: Spontaneous
  Country: US (occurrence: None)
  Receive Date: 20131126
  Receipt Date: 20131126
  Transmission Date: 20140711
  Serious: Yes (Hospitalization)
  Sender: FDA-Public Use
  Company Number: None

PATIENT
  Age: 64 Year
  Sex: Female
  Weight: 95.71 kg

DRUGS (1)
  1. DAPTOMYCIN (CUBICIN) [Suspect]
     Indication: ABDOMINAL ABSCESS
     Route: 042
     Dates: start: 20131023, end: 20131125

REACTIONS (1)
  - Blood creatine phosphokinase increased [None]
